FAERS Safety Report 6904242-2 (Version None)
Quarter: 2010Q3

REPORT INFORMATION
  Report Type: 
  Country: None (occurrence: None)
  Receive Date: 20100804
  Receipt Date: 20090413
  Transmission Date: 20110219
  Serious: No
  Sender: FDA-Public Use
  Company Number: US-PFIZER INC-2009154364

PATIENT
  Sex: Female
  Weight: 68 kg

DRUGS (6)
  1. LYRICA [Suspect]
     Indication: PLANTAR FASCIITIS
     Dosage: 75 MG, 2X/DAY
     Dates: start: 20080101
  2. LEXAPRO [Concomitant]
     Dosage: UNK
  3. OMEPRAZOLE [Concomitant]
     Dosage: UNK
  4. XANAX [Concomitant]
     Indication: RESTLESS LEGS SYNDROME
     Dosage: 0.75 MG, 1X/DAY
  5. FERROUS SULFATE [Concomitant]
     Dosage: UNK
  6. ASCORBIC ACID [Concomitant]
     Dosage: UNK

REACTIONS (3)
  - AGEUSIA [None]
  - FOOD CRAVING [None]
  - WEIGHT INCREASED [None]
